FAERS Safety Report 8343390-X (Version None)
Quarter: 2012Q2

REPORT INFORMATION
  Report Type: 
  Country: None (occurrence: None)
  Receive Date: 20120503
  Receipt Date: 20120503
  Transmission Date: 20120825
  Serious: No
  Sender: FDA-Public Use
  Company Number: None

PATIENT
  Age: 31 Year
  Sex: Female

DRUGS (1)
  1. AVONEX [Suspect]
     Dosage: 30MCG QW IM
     Route: 030
     Dates: start: 20120405, end: 20120430

REACTIONS (1)
  - HEADACHE [None]
